FAERS Safety Report 4558357-7 (Version None)
Quarter: 2005Q1

REPORT INFORMATION
  Report Type: 
  Country: None (occurrence: None)
  Receive Date: 20050103
  Receipt Date: 20041011
  Transmission Date: 20050727
  Serious: Yes (Other)
  Sender: FDA-Public Use
  Company Number: 2004UW21273

PATIENT
  Age: 71 Year
  Sex: Male
  Weight: 77.11 kg

DRUGS (4)
  1. CRESTOR [Suspect]
     Indication: BLOOD CHOLESTEROL INCREASED
     Dosage: 20 MG PO
     Route: 048
     Dates: start: 20040927
  2. METOPROLOL [Concomitant]
  3. MACRODANTIN [Concomitant]
  4. FOSAMAX [Concomitant]

REACTIONS (2)
  - ASTHENIA [None]
  - FALL [None]
